FAERS Safety Report 5101131-3 (Version None)
Quarter: 2006Q3

REPORT INFORMATION
  Report Type: 
  Country: None (occurrence: None)
  Receive Date: 20060906
  Receipt Date: 20060822
  Transmission Date: 20061208
  Serious: Yes (Hospitalization)
  Sender: FDA-Public Use
  Company Number: 2006-147376-NL

PATIENT
  Age: 15 Year
  Sex: Male

DRUGS (2)
  1. CHORIONIC GONADOTROPIN [Suspect]
     Indication: GROWTH RETARDATION
     Dosage: 1 DF
     Dates: start: 20050321
  2. TESTOSTERONE [Suspect]
     Indication: GROWTH RETARDATION
     Dosage: 1 DF
     Dates: start: 20040802

REACTIONS (1)
  - PERIANAL ABSCESS [None]
